FAERS Safety Report 25517495 (Version 1)
Quarter: 2025Q3

REPORT INFORMATION
  Report Type: Other
  Country: GB (occurrence: GB)
  Receive Date: 20250704
  Receipt Date: 20250704
  Transmission Date: 20251020
  Serious: Yes (Hospitalization)
  Sender: ANI
  Company Number: GB-ANIPHARMA-023411

PATIENT
  Sex: Female

DRUGS (3)
  1. MORPHINE [Suspect]
     Active Substance: MORPHINE
     Indication: Small intestinal obstruction
     Route: 058
  2. OCTREOTIDE [Concomitant]
     Active Substance: OCTREOTIDE
     Indication: Small intestinal obstruction
  3. LEVOMEPROMAZINE [Concomitant]
     Active Substance: LEVOMEPROMAZINE
     Indication: Small intestinal obstruction

REACTIONS (1)
  - Toxicity to various agents [Unknown]
